FAERS Safety Report 9188312 (Version 1)
Quarter: 2013Q1

REPORT INFORMATION
  Report Type: Report from Study
  Country: CA (occurrence: CA)
  Receive Date: 20130325
  Receipt Date: 20130325
  Transmission Date: 20140127
  Serious: Yes (Other)
  Sender: FDA-Public Use
  Company Number: CA-JNJFOC-20130309202

PATIENT
  Sex: Male
  Weight: 63.2 kg

DRUGS (7)
  1. REMICADE [Suspect]
     Indication: CROHN^S DISEASE
     Route: 042
     Dates: start: 20120214
  2. PREDNISONE [Concomitant]
     Route: 065
  3. CELEXA [Concomitant]
     Route: 065
  4. MTX [Concomitant]
     Route: 065
  5. FOLIC ACID [Concomitant]
     Route: 065
  6. VITAMIN D [Concomitant]
     Route: 065
  7. STEROIDS NOS [Concomitant]
     Route: 065

REACTIONS (2)
  - Psoriasis [Not Recovered/Not Resolved]
  - Intestinal operation [Unknown]
